FAERS Safety Report 19101861 (Version 5)
Quarter: 2021Q2

REPORT INFORMATION
  Report Type: Spontaneous
  Country: US (occurrence: US)
  Receive Date: 20210407
  Receipt Date: 20210603
  Transmission Date: 20210717
  Serious: No
  Sender: FDA-Public Use
  Company Number: US-CELGENEUS-USA-20210307567

PATIENT
  Age: 63 Year
  Sex: Female

DRUGS (4)
  1. DEXAMETHASONE. [Suspect]
     Active Substance: DEXAMETHASONE
     Indication: PRODUCT USED FOR UNKNOWN INDICATION
     Route: 065
  2. REVLIMID [Suspect]
     Active Substance: LENALIDOMIDE
     Indication: PLASMA CELL MYELOMA
     Dosage: 25 MILLIGRAM
     Route: 048
     Dates: start: 202102
  3. REVLIMID [Suspect]
     Active Substance: LENALIDOMIDE
     Dosage: 25 MILLIGRAM
     Route: 048
     Dates: start: 20210326
  4. REVLIMID [Suspect]
     Active Substance: LENALIDOMIDE
     Dosage: 25 MILLIGRAM
     Route: 048
     Dates: start: 202104

REACTIONS (16)
  - Myalgia [Unknown]
  - Dark circles under eyes [Unknown]
  - Back pain [Unknown]
  - Muscle spasms [Unknown]
  - Mania [Unknown]
  - Eye swelling [Unknown]
  - Abdominal pain lower [Unknown]
  - Oropharyngeal pain [Unknown]
  - Blood pressure decreased [Not Recovered/Not Resolved]
  - Insomnia [Unknown]
  - Epistaxis [Unknown]
  - Feeling abnormal [Unknown]
  - Dysphemia [Unknown]
  - Oedema peripheral [Not Recovered/Not Resolved]
  - Heart rate decreased [Unknown]
  - Erythema [Unknown]

NARRATIVE: CASE EVENT DATE: 20210318
